FAERS Safety Report 18560338 (Version 6)
Quarter: 2021Q2

REPORT INFORMATION
  Report Type: Report from Study
  Country: DE (occurrence: DE)
  Receive Date: 20201130
  Receipt Date: 20210624
  Transmission Date: 20210717
  Serious: Yes (Death, Hospitalization)
  Sender: FDA-Public Use
  Company Number: DE-EXELIXIS-XL18420035480

PATIENT
  Age: 71 Year
  Sex: Male
  Weight: 75 kg

DRUGS (10)
  1. FOLIC ACID. [Concomitant]
     Active Substance: FOLIC ACID
     Indication: FOLATE DEFICIENCY
     Dosage: 5 MG, EVERY TWO WEEKS
     Route: 048
     Dates: start: 201910
  2. PREDNISOLON [Concomitant]
     Active Substance: PREDNISOLONE
     Indication: ARTHRITIS
     Dosage: 5 MG, DAILY
     Route: 048
     Dates: start: 201910, end: 20191121
  3. EXFORGE [Concomitant]
     Active Substance: AMLODIPINE BESYLATE\VALSARTAN
     Indication: HYPERTENSION
     Dosage: 10/160 MG, DAILY
     Route: 048
     Dates: start: 20201122, end: 20201202
  4. BISOPROLOL [Concomitant]
     Active Substance: BISOPROLOL
     Indication: HYPERTENSION
     Dosage: 5 MG DAILY
     Route: 048
     Dates: start: 2019
  5. METHOTREXAT [Concomitant]
     Active Substance: METHOTREXATE
     Indication: ARTHRITIS
     Dosage: 25 MG, ONE TIME PER WEEK
     Route: 058
     Dates: start: 201910
  6. PREDNISOLON [Concomitant]
     Active Substance: PREDNISOLONE
     Dosage: 2.5 MG, DAILY
     Route: 048
     Dates: start: 20201121
  7. CABOZANTINIB [Suspect]
     Active Substance: CABOZANTINIB
     Indication: METASTATIC RENAL CELL CARCINOMA
     Dosage: 60 MG, QD
     Route: 065
     Dates: start: 20201027, end: 20201121
  8. VITAMIN D [Concomitant]
     Active Substance: VITAMIN D NOS
     Indication: VITAMIN D DEFICIENCY
     Dosage: 20000 IU EVERY 2 WEEKS
     Route: 048
     Dates: start: 201910
  9. BISOPROLOL [Concomitant]
     Active Substance: BISOPROLOL
     Indication: HYPERTENSION
  10. TINZAPARIN [Concomitant]
     Active Substance: TINZAPARIN
     Indication: THROMBOSIS PROPHYLAXIS
     Dosage: 3500 IU, DAILY
     Route: 058
     Dates: start: 20201121, end: 20201126

REACTIONS (2)
  - General physical health deterioration [Recovered/Resolved]
  - Ataxia [Recovered/Resolved with Sequelae]

NARRATIVE: CASE EVENT DATE: 20201121
